FAERS Safety Report 5262333-9 (Version None)
Quarter: 2007Q1

REPORT INFORMATION
  Report Type: 
  Country: None (occurrence: None)
  Receive Date: 20070308
  Receipt Date: 20070308
  Transmission Date: 20070707
  Serious: Yes (Hospitalization)
  Sender: FDA-Public Use
  Company Number: None

PATIENT
  Age: 60 Year
  Sex: Female

DRUGS (3)
  1. ENOXAPARIN SODIUM [Suspect]
     Indication: MITRAL VALVE REPLACEMENT
     Dosage: 60MG TWICE DAILY SUBCE
     Dates: start: 20070126, end: 20070130
  2. ENOXAPARIN SODIUM [Suspect]
     Indication: TRICUSPID VALVE REPLACEMENT
     Dosage: 60MG TWICE DAILY SUBCE
     Dates: start: 20070126, end: 20070130
  3. ENOXAPARIN SODIUM [Suspect]
     Dosage: 40MG DAILY SUBCU
     Route: 058
     Dates: start: 20070201, end: 20070206

REACTIONS (2)
  - ANTIBODY TEST POSITIVE [None]
  - THROMBOCYTOPENIA [None]
